FAERS Safety Report 21716442 (Version 3)
Quarter: 2023Q2

REPORT INFORMATION
  Report Type: Report from Study
  Country: US (occurrence: US)
  Receive Date: 20221212
  Receipt Date: 20230620
  Transmission Date: 20230721
  Serious: Yes (Hospitalization, Other)
  Sender: FDA-Public Use
  Company Number: US-XERIS PHARMACEUTICALS-2022XER00220

PATIENT
  Sex: Female

DRUGS (6)
  1. KEVEYIS [Suspect]
     Active Substance: DICHLORPHENAMIDE
     Indication: Paralysis
     Dosage: 1 TABLET (50 MG), 2X/DAY
     Route: 048
     Dates: start: 20220528, end: 20220608
  2. KEVEYIS [Suspect]
     Active Substance: DICHLORPHENAMIDE
     Dosage: 1 TABLET (50 MG), 2X/DAY
     Route: 048
     Dates: start: 20220609, end: 202206
  3. KEVEYIS [Suspect]
     Active Substance: DICHLORPHENAMIDE
     Dosage: 1/4 TABLET (12.5 MG)
     Route: 048
     Dates: start: 202206, end: 2022
  4. KEVEYIS [Suspect]
     Active Substance: DICHLORPHENAMIDE
     Dosage: 1/4 TABLET (12.5 MG), 2X/DAY
     Route: 048
     Dates: start: 2022
  5. KEVEYIS [Suspect]
     Active Substance: DICHLORPHENAMIDE
     Dosage: 1/4 TABLET (12.5 MG), 2X/DAY
     Route: 048
  6. KEVEYIS [Suspect]
     Active Substance: DICHLORPHENAMIDE
     Dosage: 1/4 TABLET (12.5 MG), 2X/DAY
     Route: 048

REACTIONS (17)
  - Pneumonia [Unknown]
  - Sepsis [Unknown]
  - Seizure [Recovering/Resolving]
  - Brain fog [Recovering/Resolving]
  - Back injury [Not Recovered/Not Resolved]
  - Throat irritation [Not Recovered/Not Resolved]
  - Limb injury [Unknown]
  - Giant cell arteritis [Not Recovered/Not Resolved]
  - Taste disorder [Not Recovered/Not Resolved]
  - Paralysis [Recovered/Resolved]
  - Paraesthesia [Recovered/Resolved]
  - Burning sensation [Not Recovered/Not Resolved]
  - Confusional state [Recovering/Resolving]
  - Fall [Recovering/Resolving]
  - Arthralgia [Not Recovered/Not Resolved]
  - Weight decreased [Not Recovered/Not Resolved]
  - Headache [Not Recovered/Not Resolved]

NARRATIVE: CASE EVENT DATE: 20220101
